FAERS Safety Report 10589279 (Version 1)
Quarter: 2014Q4

REPORT INFORMATION
  Report Type: Not Available
  Country: CH (occurrence: CH)
  Receive Date: 20141118
  Receipt Date: 20141118
  Transmission Date: 20150529
  Serious: Yes (Hospitalization)
  Sender: FDA-Public Use
  Company Number: CH-BEH-2014046236

PATIENT
  Age: 66 Year
  Sex: Male
  Weight: 82 kg

DRUGS (6)
  1. MADOPAR [Concomitant]
     Active Substance: BENSERAZIDE HYDROCHLORIDE\LEVODOPA
     Indication: PARKINSON^S DISEASE
     Dosage: STRENGTH 200 MG/50 MG
     Route: 048
  2. DERMOVATE [Concomitant]
     Active Substance: CLOBETASOL
     Route: 061
  3. PRIVIGEN [Suspect]
     Active Substance: HUMAN IMMUNOGLOBULIN G
     Indication: LICHEN MYXOEDEMATOSUS
     Route: 041
     Dates: start: 20140910, end: 20140911
  4. ASPIRIN CARDIO [Concomitant]
     Active Substance: ASPIRIN
     Indication: PRODUCT USED FOR UNKNOWN INDICATION
     Route: 048
  5. CONDROSULF [Concomitant]
     Indication: PRODUCT USED FOR UNKNOWN INDICATION
     Route: 048
  6. INDERAL [Concomitant]
     Active Substance: PROPRANOLOL HYDROCHLORIDE
     Indication: PARKINSONIAN REST TREMOR
     Dosage: STRENGTH 40 MG; 1.5 PER 1 DAY
     Route: 048
     Dates: start: 20140915

REACTIONS (3)
  - Hallucination, visual [Recovered/Resolved]
  - Hallucination, auditory [Recovered/Resolved]
  - Confusional state [Recovered/Resolved]

NARRATIVE: CASE EVENT DATE: 20140911
